FAERS Safety Report 7597466-5 (Version None)
Quarter: 2011Q3

REPORT INFORMATION
  Report Type: 
  Country: None (occurrence: None)
  Receive Date: 20110708
  Receipt Date: 20110627
  Transmission Date: 20111222
  Serious: Yes (Other)
  Sender: FDA-Public Use
  Company Number: PHHY2011CA57340

PATIENT
  Sex: Female

DRUGS (4)
  1. RADIOTHERAPY [Concomitant]
  2. CHEMOTHERAPEUTICS NOS [Concomitant]
  3. ZOLEDRONOC ACID [Suspect]
     Dosage: UNK
     Route: 042
     Dates: start: 20100806
  4. ZOLEDRONOC ACID [Suspect]
     Indication: OSTEOPOROSIS
     Dosage: UNK
     Route: 042
     Dates: start: 20090716

REACTIONS (1)
  - BREAST CANCER [None]
